FAERS Safety Report 6045222-1 (Version None)
Quarter: 2009Q1

REPORT INFORMATION
  Report Type: 
  Country: None (occurrence: None)
  Receive Date: 20090121
  Receipt Date: 20090110
  Transmission Date: 20090719
  Serious: Yes (Other)
  Sender: FDA-Public Use
  Company Number: FR-PFIZER INC-2009155771

PATIENT

DRUGS (1)
  1. ARTHROTEC [Suspect]
     Indication: PAIN
     Dosage: FREQUENCY: PRN,
     Route: 048
     Dates: end: 20090110

REACTIONS (5)
  - FORMICATION [None]
  - PRURITUS [None]
  - RASH GENERALISED [None]
  - SUFFOCATION FEELING [None]
  - URTICARIA [None]
